FAERS Safety Report 22759856 (Version 2)
Quarter: 2023Q4

REPORT INFORMATION
  Report Type: Report from Study
  Country: CN (occurrence: CN)
  Receive Date: 20230728
  Receipt Date: 20231208
  Transmission Date: 20240110
  Serious: Yes (Other)
  Sender: FDA-Public Use
  Company Number: CN-TAKEDA-2022TUS076500

PATIENT
  Age: 52 Year
  Sex: Male
  Weight: 65 kg

DRUGS (16)
  1. VEDOLIZUMAB [Suspect]
     Active Substance: VEDOLIZUMAB
     Indication: Colitis ulcerative
     Dosage: 300 MILLIGRAM
     Route: 042
     Dates: start: 20220712
  2. BACILLUS SUBTILIS [Concomitant]
     Active Substance: BACILLUS SUBTILIS
     Indication: Dysbiosis
     Dosage: 250 MILLIGRAM, QD
     Route: 048
     Dates: start: 20220726, end: 20221210
  3. BACILLUS SUBTILIS [Concomitant]
     Active Substance: BACILLUS SUBTILIS
     Dosage: 500 MILLIGRAM, TID
     Route: 048
     Dates: start: 20230918
  4. MESALAMINE [Concomitant]
     Active Substance: MESALAMINE
     Indication: Inflammatory bowel disease
     Dosage: 1 GRAM, TID
     Route: 048
     Dates: start: 20220712, end: 20220822
  5. MESALAMINE [Concomitant]
     Active Substance: MESALAMINE
     Indication: Gastrointestinal infection
     Dosage: 2 GRAM, BID
     Route: 048
     Dates: start: 20220823, end: 202209
  6. MESALAMINE [Concomitant]
     Active Substance: MESALAMINE
     Dosage: 1 GRAM, QD
     Route: 054
     Dates: start: 20220712, end: 20221210
  7. MESALAMINE [Concomitant]
     Active Substance: MESALAMINE
     Dosage: 0.5 GRAM, QD
     Dates: start: 20230530, end: 20230530
  8. LIDOCAINE [Concomitant]
     Active Substance: LIDOCAINE
     Indication: Inflammatory bowel disease
     Dosage: UNK UNK, QD
     Dates: start: 20220712, end: 202209
  9. ORNIDAZOLE [Concomitant]
     Active Substance: ORNIDAZOLE
     Indication: Inflammatory bowel disease
     Dosage: 100 MILLILITER, QD
     Dates: start: 20220712, end: 202209
  10. TIN [Concomitant]
     Active Substance: TIN
     Indication: Inflammatory bowel disease
     Dosage: 3 GRAM, QD
     Dates: start: 20220712, end: 202209
  11. SODIUM POTASSIUM MAGNESIUM CALCIUM AND GLUCOSE [Concomitant]
     Indication: Prophylaxis against dehydration
     Dosage: 500 MILLILITER, QD
     Route: 041
     Dates: start: 20230209, end: 20230209
  12. POTASSIUM CHLORIDE [Concomitant]
     Active Substance: POTASSIUM CHLORIDE
     Indication: Prophylaxis against dehydration
     Dosage: 10 MILLILITER, QD
     Route: 041
     Dates: start: 20230209, end: 20230209
  13. LACTULOSE [Concomitant]
     Active Substance: LACTULOSE
     Indication: Constipation
     Dosage: 15 MILLILITER, QD
     Route: 048
     Dates: start: 20230530
  14. FLUOXETINE HYDROCHLORIDE [Concomitant]
     Active Substance: FLUOXETINE HYDROCHLORIDE
     Indication: Constipation
     Dosage: 20 MILLIGRAM, QD
     Route: 048
     Dates: start: 20230530, end: 20230614
  15. CEFTRIAXONE SODIUM [Concomitant]
     Active Substance: CEFTRIAXONE SODIUM
     Indication: Anti-infective therapy
     Dosage: 1 GRAM, Q12H
     Route: 042
     Dates: start: 20230917, end: 20230919
  16. VITAMIN C [Concomitant]
     Active Substance: ASCORBIC ACID
     Indication: Prophylaxis against dehydration
     Dosage: 1 GRAM, QD
     Route: 042
     Dates: start: 20230917, end: 20230919

REACTIONS (7)
  - Clostridium difficile infection [Recovered/Resolved]
  - Intervertebral disc protrusion [Not Recovered/Not Resolved]
  - Sacroiliitis [Not Recovered/Not Resolved]
  - Spinal osteoarthritis [Not Recovered/Not Resolved]
  - Large intestine polyp [Recovered/Resolved]
  - COVID-19 [Recovered/Resolved]
  - Respiratory tract infection [Recovered/Resolved]

NARRATIVE: CASE EVENT DATE: 20221018
